FAERS Safety Report 4506175-8 (Version None)
Quarter: 2004Q4

REPORT INFORMATION
  Report Type: 
  Country: None (occurrence: None)
  Receive Date: 20041025
  Receipt Date: 20040107
  Transmission Date: 20050328
  Serious: Yes (Death)
  Sender: FDA-Public Use
  Company Number: US-JNJFOC-20030702824

PATIENT
  Age: 53 Year
  Sex: Female
  Weight: 99.3377 kg

DRUGS (25)
  1. REMICADE [Suspect]
     Indication: RHEUMATOID ARTHRITIS
     Dosage: SEE IMAGE
     Route: 042
     Dates: start: 20030121
  2. REMICADE [Suspect]
     Indication: RHEUMATOID ARTHRITIS
     Dosage: SEE IMAGE
     Route: 042
     Dates: start: 20030205
  3. REMICADE [Suspect]
     Indication: RHEUMATOID ARTHRITIS
     Dosage: SEE IMAGE
     Route: 042
     Dates: start: 20030318
  4. REMICADE [Suspect]
     Indication: RHEUMATOID ARTHRITIS
     Dosage: SEE IMAGE
     Route: 042
     Dates: start: 20030513
  5. REMICADE [Suspect]
  6. REMICADE [Suspect]
  7. REMICADE [Suspect]
  8. REMICADE [Suspect]
  9. PREMARIN [Concomitant]
  10. OXYCONTIN [Concomitant]
  11. SULFASALAZINE [Concomitant]
  12. NEURONTIN [Concomitant]
  13. ZOCOR [Concomitant]
  14. FOLIC ACID [Concomitant]
  15. VITAMN E (TOCOPHEROL) [Concomitant]
  16. SEROQUEL [Concomitant]
  17. IMITREX [Concomitant]
  18. PAXIL [Concomitant]
  19. ZEBETA [Concomitant]
  20. METHORTREXATE (METHORTREXATE) [Concomitant]
  21. TRAZODONE HCL [Concomitant]
  22. CELEBREX [Concomitant]
  23. K-DUR 10 [Concomitant]
  24. LASIX [Concomitant]
  25. BOWEL PREP KIT (ALLOTHER THERAPEUTIC PRODUCTS) [Concomitant]

REACTIONS (4)
  - FATIGUE [None]
  - MUSCLE FATIGUE [None]
  - PNEUMONIA [None]
  - VISUAL DISTURBANCE [None]
